FAERS Safety Report 10041016 (Version 2)
Quarter: 2014Q2

REPORT INFORMATION
  Report Type: Spontaneous
  Country: US (occurrence: US)
  Receive Date: 20140327
  Receipt Date: 20140411
  Transmission Date: 20141212
  Serious: Yes (Hospitalization)
  Sender: FDA-Public Use
  Company Number: US-INCYTE CORPORATION-2014IN000722

PATIENT
  Age: 83 Year
  Sex: Female

DRUGS (22)
  1. HYDROCHLOROTHIAZIDE [Concomitant]
     Dosage: 25 MG, QD
     Route: 065
  2. MOTRIN [Concomitant]
  3. MUCINEX [Concomitant]
     Dosage: AS DIRECTED TWICE DAILY
     Route: 065
  4. TYLENOL ARTHRITIS [Concomitant]
     Dosage: 650 MG,  2 TABLETS EVERY 12 HOURS
  5. VITAMIN C                          /00008001/ [Concomitant]
     Dosage: 500 MG, QD
     Route: 065
  6. AMBIEN [Concomitant]
     Dosage: 5 MG, 1/2 TO 1 TABLET DAILY AT BEDTIME
     Route: 065
  7. SERTRALINE [Concomitant]
  8. HYDROCORTISONE [Concomitant]
  9. MULTIVITAMIN                       /00097801/ [Concomitant]
  10. PROBIOTIC [Concomitant]
  11. VIDAZA [Concomitant]
     Dosage: 100 MG, FOR 5 DAYS A WEEK  FOR 2 WEEKS EVERY 5 WEEKS
  12. JAKAFI [Suspect]
     Dosage: 15 MG, BID
     Route: 048
     Dates: start: 20130614, end: 2014
  13. METOPROLOL [Concomitant]
     Dosage: 50 MG, QD
  14. LISINOPRIL [Concomitant]
  15. SYNTHROID [Concomitant]
     Dosage: 100 MCG, QD
  16. TYLENOL                            /00020001/ [Concomitant]
  17. OCUVITE                            /01053801/ [Concomitant]
  18. GLUCOTROL [Concomitant]
  19. CLARITIN                           /00413701/ [Concomitant]
     Dosage: 10 MG, QD
     Route: 065
  20. TAGAMET                            /00397401/ [Concomitant]
  21. BENADRYL                           /00000402/ [Concomitant]
     Dosage: 25 MG, Q 6 HOURS, PRN
  22. GLUCOSAMINE [Concomitant]
     Dosage: 2000 MG, QD
     Route: 065

REACTIONS (25)
  - Anaemia [Unknown]
  - Thrombocytopenia [Unknown]
  - Neutropenia [Unknown]
  - Pyrexia [Unknown]
  - Chills [Unknown]
  - Oral pain [Unknown]
  - Eating disorder [Unknown]
  - Fluid intake reduced [Unknown]
  - Nausea [Unknown]
  - Vomiting [Unknown]
  - Urinary tract infection [Recovered/Resolved]
  - Somnolence [Unknown]
  - Asthenia [Not Recovered/Not Resolved]
  - Confusional state [Recovering/Resolving]
  - Dehydration [Unknown]
  - Mental status changes [Recovering/Resolving]
  - Hyponatraemia [Unknown]
  - Hypokalaemia [Unknown]
  - Leukopenia [Unknown]
  - Oral candidiasis [Unknown]
  - Dyspnoea [Not Recovered/Not Resolved]
  - Ear pain [Not Recovered/Not Resolved]
  - Decreased appetite [Not Recovered/Not Resolved]
  - Eustachian tube dysfunction [Unknown]
  - Headache [Not Recovered/Not Resolved]
